FAERS Safety Report 8577176-8 (Version None)
Quarter: 2012Q3

REPORT INFORMATION
  Report Type: 
  Country: None (occurrence: None)
  Receive Date: 20120807
  Receipt Date: 20120730
  Transmission Date: 20120928
  Serious: Yes (Hospitalization)
  Sender: FDA-Public Use
  Company Number: US-ABBOTT-12P-163-0949861-00

PATIENT
  Sex: Male

DRUGS (26)
  1. LIPITOR [Concomitant]
     Indication: BLOOD CHOLESTEROL INCREASED
     Dosage: DAILY
  2. NORCO [Concomitant]
     Indication: ABDOMINAL PAIN
  3. VICODIN ES [Concomitant]
     Indication: PRODUCT USED FOR UNKNOWN INDICATION
  4. PROVIGIL [Concomitant]
     Indication: PRODUCT USED FOR UNKNOWN INDICATION
  5. MIRALAX [Concomitant]
     Indication: PRODUCT USED FOR UNKNOWN INDICATION
     Dosage: 1 SCOOP MOST DAYS
  6. ZOFRAN [Concomitant]
     Indication: PRODUCT USED FOR UNKNOWN INDICATION
  7. LANSOPRAZOLE [Concomitant]
     Indication: PRODUCT USED FOR UNKNOWN INDICATION
  8. HUMIRA [Suspect]
     Indication: CROHN'S DISEASE
     Dosage: 160MG LOADING DOSE
     Dates: start: 20120612
  9. ZETIA [Concomitant]
     Indication: BLOOD CHOLESTEROL INCREASED
     Dosage: DAILY
  10. XANAX [Concomitant]
     Indication: INSOMNIA
  11. NORCO [Concomitant]
     Indication: PANCREATITIS
     Dosage: 10/325MG 2 TABLETS Q4H PRN
  12. SYNTHROID [Concomitant]
     Indication: HYPOTHYROIDISM
  13. NITROSTAT [Concomitant]
     Indication: PRODUCT USED FOR UNKNOWN INDICATION
  14. AZULFIDINE [Concomitant]
     Indication: PRODUCT USED FOR UNKNOWN INDICATION
     Dosage: ONLY TAKING 2 G DAILY AT MOST
  15. IMURAN [Concomitant]
  16. PLAVIX [Concomitant]
     Indication: PRODUCT USED FOR UNKNOWN INDICATION
  17. ASPIRIN [Concomitant]
     Indication: CARDIAC DISORDER
     Dosage: DAILY
  18. NORCO [Concomitant]
     Indication: PAIN
  19. IMURAN [Concomitant]
     Indication: CROHN'S DISEASE
     Dosage: DAILY
  20. IMURAN [Concomitant]
  21. HUMIRA [Suspect]
  22. FIORICET [Concomitant]
     Indication: HEADACHE
  23. TRILIPIX [Concomitant]
     Indication: BLOOD CHOLESTEROL INCREASED
     Dosage: DAILY
  24. BYSTOLIC [Concomitant]
     Indication: BLOOD CHOLESTEROL INCREASED
     Dosage: DAILY
  25. CLONIDINE [Concomitant]
     Indication: BLOOD CHOLESTEROL INCREASED
     Dosage: 2 TABS, TWICE DAILY
  26. CARVEDILOL [Concomitant]
     Indication: PRODUCT USED FOR UNKNOWN INDICATION

REACTIONS (12)
  - ABDOMINAL DISCOMFORT [None]
  - ABDOMINAL PAIN UPPER [None]
  - AMYLASE INCREASED [None]
  - INSOMNIA [None]
  - NUCLEAR MAGNETIC RESONANCE IMAGING ABNORMAL [None]
  - ASTHENIA [None]
  - FATIGUE [None]
  - ABDOMINAL PAIN [None]
  - HYPOPHAGIA [None]
  - FOOD INTOLERANCE [None]
  - PANCREATIC DUCT OBSTRUCTION [None]
  - LIPASE INCREASED [None]
